FAERS Safety Report 6534151-2 (Version None)
Quarter: 2010Q1

REPORT INFORMATION
  Report Type: 
  Country: None (occurrence: None)
  Receive Date: 20100112
  Receipt Date: 20100108
  Transmission Date: 20100710
  Serious: Yes (Death, Life-Threatening)
  Sender: FDA-Public Use
  Company Number: DE-ASTRAZENECA-2010SE00856

PATIENT
  Age: 61 Year
  Sex: Male
  Weight: 70 kg

DRUGS (32)
  1. BELOC ZOK [Suspect]
     Dosage: 47.5 MG AND 23.25 MG DAILY
     Route: 048
     Dates: start: 20091020, end: 20091024
  2. ARIXTRA [Suspect]
     Route: 058
     Dates: start: 20091020, end: 20091028
  3. ASPIRIN [Suspect]
     Route: 048
     Dates: start: 20091020, end: 20091028
  4. LANSOPRAZOLE [Suspect]
     Route: 048
     Dates: start: 20091020, end: 20091028
  5. FINLEPSIN [Suspect]
     Route: 048
     Dates: start: 20091020, end: 20091028
  6. SIMVASTATIN [Suspect]
     Route: 048
     Dates: start: 20091025, end: 20091027
  7. TAVOR [Suspect]
     Route: 048
     Dates: start: 20091020, end: 20091026
  8. TAVOR [Suspect]
     Route: 048
     Dates: start: 20091027
  9. DELIX [Suspect]
     Route: 048
     Dates: start: 20091021, end: 20091024
  10. ZOPICLON [Suspect]
     Route: 048
     Dates: start: 20091020, end: 20091026
  11. EUNERPAN [Suspect]
     Route: 065
     Dates: start: 20091020, end: 20091027
  12. HAEMITON [Suspect]
     Route: 048
     Dates: start: 20091020, end: 20091024
  13. TORSEMIDE [Suspect]
     Route: 048
     Dates: start: 20091020
  14. TORSEMIDE [Suspect]
     Route: 048
     Dates: start: 20091021, end: 20091022
  15. TORSEMIDE [Suspect]
     Route: 048
     Dates: start: 20091023, end: 20091026
  16. TORSEMIDE [Suspect]
     Route: 048
     Dates: start: 20091027
  17. NOREPINEPHRINE BITARTRATE [Suspect]
     Dosage: 10 MG/50 ML NACL 0.9 %
     Route: 010
     Dates: start: 20091025
  18. NOREPINEPHRINE BITARTRATE [Suspect]
     Dosage: 10 MG/50 ML NACL 0.9 %
     Route: 010
     Dates: start: 20091028
  19. SULBACTAM/PIPERACILLIN [Suspect]
     Route: 042
     Dates: start: 20091025, end: 20091027
  20. FLUNITRAZEPAM [Suspect]
     Route: 065
     Dates: start: 20091028
  21. FUROSEMID [Suspect]
     Route: 042
     Dates: start: 20091028
  22. ZIENAM [Suspect]
     Route: 065
     Dates: start: 20091028
  23. BERLINSULIN H [Concomitant]
     Dosage: 10 8 10 10 10  IU DAILY
     Route: 058
     Dates: start: 20091020
  24. BERLINSULIN H [Concomitant]
     Dosage: 6 6 6 4 IU DAILY
     Route: 058
     Dates: start: 20091021, end: 20091025
  25. BERLINSULIN H [Concomitant]
     Dosage: 10 16 14 10 IU DAILY
     Route: 058
     Dates: start: 20091027, end: 20091028
  26. BERLINSULIN B [Concomitant]
     Dosage: 8 0 0 14 IU DAILY
     Route: 058
     Dates: start: 20091020, end: 20091021
  27. NAC DIAGNOSTIC REAGENT [Concomitant]
     Route: 048
     Dates: start: 20091020, end: 20091028
  28. KALINOR [Concomitant]
     Dosage: 3X2.17 MG POTASSIUM CITRATE AND 2 G POTASSIUM CARBONATE DAILY
     Route: 048
     Dates: start: 20091021, end: 20091023
  29. KALINOR [Concomitant]
     Dosage: 2X2.17 MG POTASSIUM CITRATE AND 2 G POTASSIUM CARBONATE DAILY
     Route: 048
     Dates: start: 20091024
  30. KALINOR [Concomitant]
     Dosage: 2X2X2.17 MG POTASSIUM CITRATE AND 2 G POTASSIUM CARBONATE DAILY
     Route: 048
     Dates: start: 20091025
  31. KALINOR [Concomitant]
     Dosage: 2X2.17 MG POTASSIUM CITRATE AND 2 G POTASSIUM CARBONATE DAILY
     Route: 048
     Dates: start: 20091026
  32. KALINOR [Concomitant]
     Dosage: 3X2.17 MG POTASSIUM CITRATE AND 2 G POTASSIUM CARBONATE DAILY
     Route: 048
     Dates: start: 20091027

REACTIONS (3)
  - RENAL FAILURE ACUTE [None]
  - RHABDOMYOLYSIS [None]
  - URINE COLOUR ABNORMAL [None]
